FAERS Safety Report 8602081-8 (Version None)
Quarter: 2012Q3

REPORT INFORMATION
  Report Type: 
  Country: None (occurrence: None)
  Receive Date: 20120817
  Receipt Date: 20120813
  Transmission Date: 20120928
  Serious: Yes (Other)
  Sender: FDA-Public Use
  Company Number: US-PFIZER INC-2012198584

PATIENT
  Sex: Female

DRUGS (5)
  1. CORGARD [Suspect]
     Dosage: 20 MG, DAILY
     Route: 048
  2. LIPITOR [Suspect]
     Indication: BLOOD CHOLESTEROL ABNORMAL
     Dosage: 20 MG,DAILY
     Route: 048
  3. CORGARD [Suspect]
     Indication: HEART RATE INCREASED
     Dosage: 40 MG,DAILY
     Route: 048
  4. SIMVASTATIN [Suspect]
     Indication: BLOOD CHOLESTEROL ABNORMAL
     Dosage: 10 MG,DAILY
     Dates: start: 20120101, end: 20120101
  5. CRESTOR [Suspect]
     Indication: BLOOD CHOLESTEROL ABNORMAL
     Dosage: 10 MG, EVERY OTHER DAY
     Route: 048
     Dates: start: 20120101, end: 20120101

REACTIONS (12)
  - DIARRHOEA [None]
  - NAUSEA [None]
  - DRUG INTOLERANCE [None]
  - FEELING ABNORMAL [None]
  - ARTHRALGIA [None]
  - PAIN IN EXTREMITY [None]
  - FATIGUE [None]
  - HYPERSOMNIA [None]
  - MALAISE [None]
  - DIVERTICULITIS [None]
  - FLUID IMBALANCE [None]
  - MUSCLE SPASMS [None]
